FAERS Safety Report 17386401 (Version 1)
Quarter: 2020Q1

REPORT INFORMATION
  Report Type: Spontaneous
  Country: CA (occurrence: CA)
  Receive Date: 20200206
  Receipt Date: 20200206
  Transmission Date: 20200409
  Serious: Yes (Hospitalization)
  Sender: FDA-Public Use
  Company Number: CA-PFIZER INC-2020052451

PATIENT
  Age: 60 Year
  Sex: Female

DRUGS (11)
  1. SALOFALK [MESALAZINE] [Concomitant]
     Active Substance: MESALAMINE
     Dosage: 20 MG, TWICE DAILY (IN THE MORNING AND AT BEDTIME)
  2. METHYLPHENIDATE. [Concomitant]
     Active Substance: METHYLPHENIDATE
     Dosage: 50 MG, DAILY (30 MG IN THE MORNING AND 20 MG AT BEDTIME)
  3. HYDROCHLOORTHIAZIDE [Concomitant]
     Active Substance: HYDROCHLOROTHIAZIDE
     Dosage: 12.5 MG, DAILY
  4. NORVASC [Concomitant]
     Active Substance: AMLODIPINE BESYLATE
     Dosage: 2.5 MG, DAILY
  5. METHYLPHENIDATE. [Concomitant]
     Active Substance: METHYLPHENIDATE
     Dosage: 50 MG, DAILY (30 MG IN THE MORNING AND 20 MG AT BEDTIME)
  6. PANTOPRAZOLE [Concomitant]
     Active Substance: PANTOPRAZOLE
     Dosage: 40 MG, ONCE DAILY (IN THE MORNING)
  7. APO-K [Concomitant]
     Active Substance: POTASSIUM CHLORIDE
     Dosage: 650 MG, UNK
  8. VIT D [Concomitant]
     Active Substance: VITAMIN D NOS
     Dosage: 1000 IU, UNK
  9. CALCIUM [Concomitant]
     Active Substance: CALCIUM
     Dosage: 650 MG, UNK
  10. IBRANCE [Suspect]
     Active Substance: PALBOCICLIB
     Dosage: 125 MG, CYCLIC (ONCE DAILY FOR 21 DAYS IN A ROW, STOP FOR 7 DAYS)
     Route: 048
     Dates: start: 20190530
  11. BISOPROLOL [Concomitant]
     Active Substance: BISOPROLOL
     Dosage: 5 MG, DAILY

REACTIONS (1)
  - Lower limb fracture [Unknown]
